FAERS Safety Report 16331144 (Version 2)
Quarter: 2022Q2

REPORT INFORMATION
  Report Type: Report from Study
  Country: US (occurrence: US)
  Receive Date: 20190520
  Receipt Date: 20220616
  Transmission Date: 20220720
  Serious: Yes (Death, Other)
  Sender: FDA-Public Use
  Company Number: US-ACADIA PHARMACEUTICALS INC.-ACA-2019-012003

PATIENT
  Age: 86 Year
  Sex: Male

DRUGS (17)
  1. NUPLAZID [Suspect]
     Active Substance: PIMAVANSERIN TARTRATE
     Indication: Hallucination
     Dosage: 34 MG, QD
     Route: 048
     Dates: start: 20190227
  2. NUPLAZID [Suspect]
     Active Substance: PIMAVANSERIN TARTRATE
     Indication: Delusion
  3. NUPLAZID [Suspect]
     Active Substance: PIMAVANSERIN TARTRATE
     Indication: Parkinson^s disease psychosis
  4. ZYRTEC [Concomitant]
     Active Substance: CETIRIZINE HYDROCHLORIDE
     Route: 065
  5. FUROSEMIDE [Concomitant]
     Active Substance: FUROSEMIDE
     Route: 065
  6. SEROQUEL [Concomitant]
     Active Substance: QUETIAPINE FUMARATE
     Route: 065
  7. MEMANTINE [Concomitant]
     Active Substance: MEMANTINE
     Route: 065
  8. LEVOTHYROXINE [Concomitant]
     Active Substance: LEVOTHYROXINE
     Route: 065
  9. ESCITALOPRAM OXALATE [Concomitant]
     Active Substance: ESCITALOPRAM OXALATE
     Route: 065
  10. POTASSIUM [Concomitant]
     Active Substance: POTASSIUM
     Route: 065
  11. MELATONIN [Concomitant]
     Active Substance: MELATONIN
     Route: 065
  12. ASPIRIN [Concomitant]
     Active Substance: ASPIRIN
     Route: 065
  13. CARBIDOPA\LEVODOPA [Concomitant]
     Active Substance: CARBIDOPA\LEVODOPA
     Route: 065
  14. LISINOPRIL [Concomitant]
     Active Substance: LISINOPRIL
     Route: 065
  15. SPIRONOLACTONE [Concomitant]
     Active Substance: SPIRONOLACTONE
     Route: 065
  16. CARVEDILOL [Concomitant]
     Active Substance: CARVEDILOL
     Route: 065
  17. ISOSORBIDE MONONITRATE [Concomitant]
     Active Substance: ISOSORBIDE MONONITRATE
     Route: 065

REACTIONS (2)
  - Death [Fatal]
  - Hallucination [Unknown]

NARRATIVE: CASE EVENT DATE: 20190227
